FAERS Safety Report 8223914-3 (Version None)
Quarter: 2012Q1

REPORT INFORMATION
  Report Type: 
  Country: None (occurrence: None)
  Receive Date: 20120321
  Receipt Date: 20120319
  Transmission Date: 20120608
  Serious: Yes (Other)
  Sender: FDA-Public Use
  Company Number: US-PFIZER INC-2012071372

PATIENT
  Sex: Female
  Weight: 65.76 kg

DRUGS (3)
  1. CHANTIX [Suspect]
     Indication: SMOKING CESSATION THERAPY
     Dosage: 0.5 MG, 1X/DAY
     Route: 048
  2. CHANTIX [Suspect]
     Dosage: UNK
     Route: 048
  3. CHANTIX [Suspect]
     Dosage: UNK
     Route: 048
     Dates: start: 20101101, end: 20101201

REACTIONS (12)
  - HOMICIDAL IDEATION [None]
  - SUICIDAL IDEATION [None]
  - HYPOPHAGIA [None]
  - ANGER [None]
  - ABNORMAL DREAMS [None]
  - HEADACHE [None]
  - DEPRESSED MOOD [None]
  - AGGRESSION [None]
  - CRYING [None]
  - MIGRAINE [None]
  - PERTUSSIS [None]
  - STRESS [None]
